FAERS Safety Report 17687268 (Version 2)
Quarter: 2020Q2

REPORT INFORMATION
  Report Type: Spontaneous
  Country: US (occurrence: US)
  Receive Date: 20200421
  Receipt Date: 20200604
  Transmission Date: 20200714
  Serious: No
  Sender: FDA-Public Use
  Company Number: US-ASTRAZENECA-2020SE51727

PATIENT
  Sex: Male

DRUGS (1)
  1. BYDUREON [Suspect]
     Active Substance: EXENATIDE
     Indication: GLYCOSYLATED HAEMOGLOBIN DECREASED
     Route: 065

REACTIONS (4)
  - Intentional product misuse [Not Recovered/Not Resolved]
  - Frustration tolerance decreased [Unknown]
  - Device issue [Unknown]
  - Wrong technique in device usage process [Unknown]
